FAERS Safety Report 4436423-4 (Version None)
Quarter: 2004Q3

REPORT INFORMATION
  Report Type: 
  Country: None (occurrence: None)
  Receive Date: 20040728
  Receipt Date: 20031118
  Transmission Date: 20050211
  Serious: Yes (Hospitalization)
  Sender: FDA-Public Use
  Company Number: 203416

PATIENT
  Age: 76 Year
  Sex: Female
  Weight: 74.8 kg

DRUGS (4)
  1. RITUXAN [Suspect]
     Indication: WALDENSTROM'S MACROGLOBULINAEMIA
     Dosage: 650 MG, INTRAVENOUS
     Route: 042
     Dates: start: 20030716, end: 20030716
  2. DIPHENHYDRAMINE (DIPHENHYDRAMINE NOS) [Concomitant]
  3. APAP (ACETAMINOPHEN) [Concomitant]
  4. AMBIEN [Concomitant]

REACTIONS (4)
  - BODY TEMPERATURE INCREASED [None]
  - CHEST DISCOMFORT [None]
  - CHILLS [None]
  - DYSPNOEA [None]
